FAERS Safety Report 4651527-9 (Version None)
Quarter: 2005Q2

REPORT INFORMATION
  Report Type: 
  Country: None (occurrence: None)
  Receive Date: 20050404
  Receipt Date: 20041109
  Transmission Date: 20051028
  Serious: No
  Sender: FDA-Public Use
  Company Number: USA041183681

PATIENT
  Sex: Female

DRUGS (4)
  1. CYMBALTA [Suspect]
     Indication: MAJOR DEPRESSION
     Dosage: 30 MG DAY
  2. KLONOPIN [Concomitant]
  3. REMERON (MIRTAZAPINE ORIFARM) [Concomitant]
  4. VICODIN [Concomitant]

REACTIONS (1)
  - THINKING ABNORMAL [None]
